FAERS Safety Report 23084097 (Version 1)
Quarter: 2023Q4

REPORT INFORMATION
  Report Type: Spontaneous
  Country: US (occurrence: US)
  Receive Date: 20231019
  Receipt Date: 20231019
  Transmission Date: 20240110
  Serious: Yes (Other)
  Sender: FDA-Public Use
  Company Number: US-MYLANLABS-2023M1108888

PATIENT
  Age: 63 Year
  Sex: Female

DRUGS (1)
  1. OCTREOTIDE [Suspect]
     Active Substance: OCTREOTIDE
     Indication: Hypoglycaemia
     Dosage: 200 MICROGRAM, ONCE (SINGLE DOSE)
     Route: 065

REACTIONS (2)
  - Blood thyroid stimulating hormone decreased [Recovering/Resolving]
  - Off label use [Unknown]
